FAERS Safety Report 5317691-3 (Version None)
Quarter: 2007Q2

REPORT INFORMATION
  Report Type: 
  Country: None (occurrence: None)
  Receive Date: 20070507
  Receipt Date: 20070430
  Transmission Date: 20071010
  Serious: Yes (Death)
  Sender: FDA-Public Use
  Company Number: PHBS2007IT06877

PATIENT
  Age: 82 Year
  Sex: Male

DRUGS (6)
  1. GLEEVEC [Suspect]
     Indication: GASTROINTESTINAL STROMAL TUMOUR
     Dosage: 100 MG, QID
     Route: 048
     Dates: start: 20070217, end: 20070310
  2. MINITRAN [Concomitant]
     Dosage: 5 MG, QD
     Route: 062
  3. LASIX [Concomitant]
     Dosage: 25 MG/D
     Route: 048
  4. LIMPIDEX [Concomitant]
     Dosage: 15 MG/D
     Route: 048
  5. ENAPREN [Concomitant]
     Route: 048
  6. DELTACORTENE [Concomitant]
     Route: 065

REACTIONS (3)
  - CARDIAC ARREST [None]
  - DIARRHOEA [None]
  - SYNCOPE [None]
